FAERS Safety Report 8342408-8 (Version None)
Quarter: 2012Q2

REPORT INFORMATION
  Report Type: 
  Country: None (occurrence: None)
  Receive Date: 20120508
  Receipt Date: 20120427
  Transmission Date: 20120825
  Serious: No
  Sender: FDA-Public Use
  Company Number: US-BIOGENIDEC-2012BI010328

PATIENT
  Age: 52 Year
  Sex: Female

DRUGS (3)
  1. TYLENOL ARTHRITIS [Concomitant]
     Indication: FIBROMYALGIA
     Dates: start: 20120301
  2. TYSABRI [Suspect]
     Indication: MULTIPLE SCLEROSIS
     Route: 042
     Dates: start: 20080618, end: 20120418
  3. MOBIC [Concomitant]
     Indication: FIBROMYALGIA
     Route: 048
     Dates: start: 20030101, end: 20120301

REACTIONS (9)
  - DRUG HYPERSENSITIVITY [None]
  - HAEMATOCRIT DECREASED [None]
  - SLEEP STUDY ABNORMAL [None]
  - ROAD TRAFFIC ACCIDENT [None]
  - SCIATICA [None]
  - TACHYCARDIA [None]
  - COCCYDYNIA [None]
  - IRON DEFICIENCY ANAEMIA [None]
  - OEDEMA PERIPHERAL [None]
